FAERS Safety Report 4902090-6 (Version None)
Quarter: 2006Q1

REPORT INFORMATION
  Report Type: 
  Country: None (occurrence: None)
  Receive Date: 20060206
  Receipt Date: 20060129
  Transmission Date: 20060701
  Serious: Yes (Other)
  Sender: FDA-Public Use
  Company Number: LU-GLAXOSMITHKLINE-B0408950A

PATIENT

DRUGS (1)
  1. SEROXAT [Suspect]
     Route: 048

REACTIONS (1)
  - HEPATOTOXICITY [None]
